FAERS Safety Report 12667200 (Version 1)
Quarter: 2016Q3

REPORT INFORMATION
  Report Type: Spontaneous
  Country: US (occurrence: None)
  Receive Date: 20160818
  Receipt Date: 20160818
  Transmission Date: 20161109
  Serious: No
  Sender: FDA-Public Use
  Company Number: None

PATIENT
  Age: 33 Year
  Sex: Female
  Weight: 61.24 kg

DRUGS (1)
  1. ROGAINE [Suspect]
     Active Substance: MINOXIDIL
     Indication: ANDROGENETIC ALOPECIA
     Dosage: TWICE A DAY APPLIED TO A SURFACE, USUALLY THE SKIN
     Dates: start: 20130101, end: 20130801

REACTIONS (1)
  - Menorrhagia [None]

NARRATIVE: CASE EVENT DATE: 20130101
